FAERS Safety Report 18979466 (Version 1)
Quarter: 2021Q1

REPORT INFORMATION
  Report Type: Spontaneous
  Country: PH (occurrence: PH)
  Receive Date: 20210308
  Receipt Date: 20210308
  Transmission Date: 20210420
  Serious: Yes (Death, Other)
  Sender: FDA-Public Use
  Company Number: PH-ASTELLAS-2021US008365

PATIENT
  Sex: Male

DRUGS (1)
  1. XTANDI [Suspect]
     Active Substance: ENZALUTAMIDE
     Indication: PROSTATE CANCER
     Route: 048
     Dates: start: 20200916

REACTIONS (3)
  - Multiple organ dysfunction syndrome [Fatal]
  - Inability to afford medication [Unknown]
  - Underdose [Unknown]

NARRATIVE: CASE EVENT DATE: 20210222
